FAERS Safety Report 13678549 (Version 3)
Quarter: 2017Q3

REPORT INFORMATION
  Report Type: Report from Study
  Country: US (occurrence: US)
  Receive Date: 20170622
  Receipt Date: 20170718
  Transmission Date: 20171127
  Serious: Yes (Other)
  Sender: FDA-Public Use
  Company Number: US-AMGEN-USASL2017093960

PATIENT
  Age: 92 Year
  Sex: Female

DRUGS (6)
  1. OXYCODONE [Concomitant]
     Active Substance: OXYCODONE
     Dosage: 20 MG, UNK
  2. ENBREL [Suspect]
     Active Substance: ETANERCEPT
     Indication: RHEUMATOID ARTHRITIS
     Dosage: 50 MG, QWK
     Route: 065
     Dates: start: 201702
  3. LYRICA [Suspect]
     Active Substance: PREGABALIN
     Dosage: 25 MG, UNK
     Route: 065
  4. VITAMIN B12 [Concomitant]
     Active Substance: CYANOCOBALAMIN
     Dosage: ONCE A MONTH
  5. OXYCODONE [Concomitant]
     Active Substance: OXYCODONE
     Dosage: TWO EVERY 4 TO 6 HOURS, AS NECESSARY
  6. LYRICA [Suspect]
     Active Substance: PREGABALIN
     Indication: PAIN
     Dosage: 50 MG, UNK
     Route: 065

REACTIONS (19)
  - Arthralgia [Unknown]
  - Wrong technique in product usage process [Unknown]
  - Hip fracture [Unknown]
  - Hypothyroidism [Unknown]
  - Femur fracture [Unknown]
  - Blood iron decreased [Unknown]
  - Dizziness [Unknown]
  - Visual impairment [Unknown]
  - Injection site pain [Unknown]
  - Underdose [Unknown]
  - Nervousness [Unknown]
  - Thinking abnormal [Unknown]
  - Memory impairment [Unknown]
  - Feeling abnormal [Unknown]
  - Depressed level of consciousness [Unknown]
  - Blood pressure increased [Unknown]
  - Peripheral swelling [Unknown]
  - Fall [Unknown]
  - Injection site haemorrhage [Unknown]

NARRATIVE: CASE EVENT DATE: 2017
